FAERS Safety Report 13454543 (Version 1)
Quarter: 2017Q2

REPORT INFORMATION
  Report Type: Spontaneous
  Country: US (occurrence: US)
  Receive Date: 20170418
  Receipt Date: 20170418
  Transmission Date: 20170830
  Serious: No
  Sender: FDA-Public Use
  Company Number: US-ALLERGAN-1701744US

PATIENT
  Sex: Female
  Weight: 61.22 kg

DRUGS (1)
  1. LATISSE [Suspect]
     Active Substance: BIMATOPROST
     Indication: GROWTH OF EYELASHES
     Dosage: 2 GTT, QHS
     Route: 061
     Dates: start: 2011, end: 20170110

REACTIONS (6)
  - Eyelid disorder [Not Recovered/Not Resolved]
  - Eyelid skin dryness [Not Recovered/Not Resolved]
  - Inappropriate schedule of drug administration [Unknown]
  - Excessive skin [Unknown]
  - Eyelids pruritus [Not Recovered/Not Resolved]
  - Off label use [Unknown]
